FAERS Safety Report 20213266 (Version 2)
Quarter: 2022Q1

REPORT INFORMATION
  Report Type: Spontaneous
  Country: IL (occurrence: IL)
  Receive Date: 20211221
  Receipt Date: 20220325
  Transmission Date: 20220423
  Serious: Yes (Hospitalization, Other)
  Sender: FDA-Public Use
  Company Number: IL-PFIZER INC-202101772469

PATIENT
  Age: 24 Year
  Sex: Female

DRUGS (11)
  1. MEROPENEM [Suspect]
     Active Substance: MEROPENEM
     Indication: Cystic fibrosis lung
     Dosage: UNK
     Route: 042
  2. LINEZOLID [Suspect]
     Active Substance: LINEZOLID
     Indication: Cystic fibrosis lung
     Dosage: UNK
     Route: 048
  3. AZITHROMYCIN [Suspect]
     Active Substance: AZITHROMYCIN
     Indication: Cystic fibrosis lung
     Dosage: UNK
     Route: 048
  4. AMIKACIN [Suspect]
     Active Substance: AMIKACIN
     Indication: Cystic fibrosis lung
     Dosage: UNK
     Route: 042
  5. AMIKACIN [Suspect]
     Active Substance: AMIKACIN
     Dosage: UNK
     Route: 045
  6. CEFOXITIN [Suspect]
     Active Substance: CEFOXITIN SODIUM
     Indication: Cystic fibrosis lung
     Dosage: UNK
     Route: 042
  7. CLARITHROMYCIN [Suspect]
     Active Substance: CLARITHROMYCIN
     Indication: Cystic fibrosis lung
     Dosage: UNK
     Route: 048
  8. CIPROFLOXACIN [Suspect]
     Active Substance: CIPROFLOXACIN
     Indication: Cystic fibrosis lung
     Dosage: UNK
     Route: 048
  9. MOXIFLOXACIN [Suspect]
     Active Substance: MOXIFLOXACIN
     Indication: Cystic fibrosis lung
     Dosage: UNK
     Route: 048
  10. MINOCYCLINE [Suspect]
     Active Substance: MINOCYCLINE HYDROCHLORIDE
     Indication: Cystic fibrosis lung
     Dosage: UNK
     Route: 048
  11. CLOFAZIMINE [Suspect]
     Active Substance: CLOFAZIMINE
     Indication: Cystic fibrosis lung
     Dosage: UNK
     Route: 048

REACTIONS (10)
  - Drug ineffective [Unknown]
  - Hypoxia [Recovering/Resolving]
  - Neutropenia [Recovering/Resolving]
  - Weight decreased [Recovering/Resolving]
  - Anaemia [Recovering/Resolving]
  - Cystic fibrosis related diabetes [Recovering/Resolving]
  - Henoch-Schonlein purpura [Recovering/Resolving]
  - Skin discolouration [Recovering/Resolving]
  - Feeding disorder [Recovering/Resolving]
  - Malnutrition [Recovering/Resolving]
